FAERS Safety Report 9751887 (Version 1)
Quarter: 2013Q4

REPORT INFORMATION
  Report Type: Spontaneous
  Country: US (occurrence: US)
  Receive Date: 20131213
  Receipt Date: 20131213
  Transmission Date: 20140711
  Serious: Yes (Hospitalization)
  Sender: FDA-Public Use
  Company Number: US-BRISTOL-MYERS SQUIBB COMPANY-19886993

PATIENT
  Age: 82 Year
  Sex: Female
  Weight: 60.32 kg

DRUGS (19)
  1. ABATACEPT SUBQ INJECTION 125MG/ML [Suspect]
     Route: 058
  2. ALPRAZOLAM [Concomitant]
  3. AMBIEN [Concomitant]
  4. AMITIZA [Concomitant]
  5. CARAFATE [Concomitant]
  6. DIOVAN [Concomitant]
  7. ESTRACE CREAM 0.01% [Concomitant]
  8. LASIX [Concomitant]
  9. LEVOXYL [Concomitant]
  10. LIDODERM [Concomitant]
  11. NEXIUM [Concomitant]
  12. NORCO [Concomitant]
  13. PENNSAID [Concomitant]
  14. PREDNISONE [Concomitant]
  15. SPIRONOLACTONE [Concomitant]
  16. TRADJENTA [Concomitant]
  17. CALCIUM [Concomitant]
  18. ALLERTABS [Concomitant]
  19. HYDROXYCHLOROQUINE [Concomitant]

REACTIONS (2)
  - Myocardial infarction [Unknown]
  - Cellulitis [Unknown]
